FAERS Safety Report 5528709-7 (Version None)
Quarter: 2007Q4

REPORT INFORMATION
  Report Type: 
  Country: None (occurrence: None)
  Receive Date: 20071126
  Receipt Date: 20071113
  Transmission Date: 20080405
  Serious: Yes (Other)
  Sender: FDA-Public Use
  Company Number: 2007-167596-NL

PATIENT
  Age: 24 Year
  Sex: Female
  Weight: 62.6 kg

DRUGS (1)
  1. NUVARING [Suspect]
     Indication: CONTRACEPTION
     Dosage: VAGINAL, 3 WKS IN, 1 WK OUT
     Route: 067
     Dates: end: 20071107

REACTIONS (3)
  - HAEMATOMA [None]
  - THROMBOSIS [None]
  - VAGINAL HAEMORRHAGE [None]
